FAERS Safety Report 26009142 (Version 1)
Quarter: 2025Q4

REPORT INFORMATION
  Report Type: Spontaneous
  Country: CN (occurrence: CN)
  Receive Date: 20251107
  Receipt Date: 20251107
  Transmission Date: 20260117
  Serious: Yes (Life-Threatening, Other)
  Sender: UNITED THERAPEUTICS
  Company Number: CN-UNITED THERAPEUTICS-UNT-2025-037473

PATIENT
  Age: 53 Year
  Sex: Female
  Weight: 72 kg

DRUGS (2)
  1. REMODULIN [Suspect]
     Active Substance: TREPROSTINIL
     Indication: Portopulmonary hypertension
     Dosage: UNK, CONTINUING
     Route: 041
  2. REMODULIN [Suspect]
     Active Substance: TREPROSTINIL
     Indication: Hepatic cirrhosis

REACTIONS (4)
  - Right ventricular failure [Recovering/Resolving]
  - Hepatic cirrhosis [Unknown]
  - Therapy non-responder [Unknown]
  - Off label use [Unknown]
